FAERS Safety Report 13986220 (Version 31)
Quarter: 2021Q2

REPORT INFORMATION
  Report Type: Report from Study
  Country: CA (occurrence: CA)
  Receive Date: 20170919
  Receipt Date: 20210420
  Transmission Date: 20210716
  Serious: Yes (Hospitalization, Other)
  Sender: FDA-Public Use
  Company Number: CA-BRISTOL-MYERS SQUIBB COMPANY-BMS-2017-066287

PATIENT
  Age: 74 Year
  Sex: Female

DRUGS (9)
  1. PLAQUENIL [HYDROXYCHLOROQUINE PHOSPHATE] [Concomitant]
     Active Substance: HYDROXYCHLOROQUINE DIPHOSPHATE
     Indication: PRODUCT USED FOR UNKNOWN INDICATION
     Route: 065
  2. PREDNISONE. [Suspect]
     Active Substance: PREDNISONE
     Indication: PRODUCT USED FOR UNKNOWN INDICATION
     Dosage: UNK
     Route: 065
  3. SULFASALAZINE. [Concomitant]
     Active Substance: SULFASALAZINE
     Indication: PRODUCT USED FOR UNKNOWN INDICATION
     Route: 065
  4. ABATACEPT [Suspect]
     Active Substance: ABATACEPT
     Dosage: 500 MILLIGRAM, Q4WK
     Route: 042
  5. HUMIRA [Suspect]
     Active Substance: ADALIMUMAB
     Indication: PRODUCT USED FOR UNKNOWN INDICATION
     Route: 065
  6. ARAVA [Concomitant]
     Active Substance: LEFLUNOMIDE
     Indication: PRODUCT USED FOR UNKNOWN INDICATION
     Route: 065
  7. ABATACEPT [Suspect]
     Active Substance: ABATACEPT
     Indication: RHEUMATOID ARTHRITIS
     Dosage: 500 MILLIGRAM, Q4WK
     Route: 042
     Dates: start: 20161102
  8. MTX [METHOTREXATE] [Concomitant]
     Active Substance: METHOTREXATE SODIUM
     Indication: PRODUCT USED FOR UNKNOWN INDICATION
     Route: 065
  9. ASPIRIN [ACETYLSALICYLIC ACID] [Concomitant]
     Active Substance: ASPIRIN
     Indication: PRODUCT USED FOR UNKNOWN INDICATION
     Route: 065

REACTIONS (34)
  - Contusion [Unknown]
  - Wound [Unknown]
  - Productive cough [Unknown]
  - Diarrhoea [Unknown]
  - Fatigue [Unknown]
  - Gastroenteritis viral [Recovering/Resolving]
  - Muscle spasms [Unknown]
  - Fall [Unknown]
  - Head injury [Unknown]
  - Renal impairment [Unknown]
  - Skin laceration [Recovered/Resolved]
  - Sputum discoloured [Unknown]
  - Asthenia [Unknown]
  - Blood creatinine increased [Unknown]
  - Pain in extremity [Unknown]
  - Inflammatory pain [Recovering/Resolving]
  - Skin discolouration [Unknown]
  - Nasopharyngitis [Recovered/Resolved]
  - Visual impairment [Unknown]
  - Loss of consciousness [Unknown]
  - Rheumatoid arthritis [Unknown]
  - Fluid retention [Unknown]
  - Dizziness [Unknown]
  - Malignant melanoma [Not Recovered/Not Resolved]
  - Haemorrhage [Unknown]
  - Wound infection [Unknown]
  - Scab [Unknown]
  - Hypotension [Unknown]
  - Weight decreased [Unknown]
  - Vomiting [Unknown]
  - Oedema peripheral [Unknown]
  - Adverse event [Unknown]
  - Oedema [Unknown]
  - Blood glucose decreased [Unknown]

NARRATIVE: CASE EVENT DATE: 20180121
